FAERS Safety Report 7001021-5 (Version None)
Quarter: 2010Q3

REPORT INFORMATION
  Report Type: 
  Country: None (occurrence: None)
  Receive Date: 20100920
  Receipt Date: 20070508
  Transmission Date: 20110219
  Serious: Yes (Other)
  Sender: FDA-Public Use
  Company Number: US-ASTRAZENECA-2006UW23309

PATIENT
  Age: 19877 Day
  Sex: Female
  Weight: 134.3 kg

DRUGS (9)
  1. SEROQUEL [Suspect]
     Indication: DEPRESSION
     Dosage: 100MG - 300 MG
     Route: 048
     Dates: start: 19980114, end: 20061011
  2. SEROQUEL [Suspect]
     Indication: SLEEP DISORDER
     Dosage: 100MG - 300 MG
     Route: 048
     Dates: start: 19980114, end: 20061011
  3. SEROQUEL [Suspect]
     Dosage: 25-600MG
     Route: 048
     Dates: start: 19990405
  4. SEROQUEL [Suspect]
     Dosage: 25-600MG
     Route: 048
     Dates: start: 19990405
  5. ABILIFY [Suspect]
     Route: 048
     Dates: start: 20061002
  6. SERTRALINE HYDROCHLORIDE [Concomitant]
     Dosage: 100-200MG
     Route: 048
     Dates: start: 19971210
  7. METFORMIN [Concomitant]
     Route: 048
     Dates: start: 20060213
  8. ACTOS [Concomitant]
     Route: 048
     Dates: start: 20061018
  9. LISINOPRIL [Concomitant]
     Route: 048
     Dates: start: 20041215

REACTIONS (7)
  - DIABETES MELLITUS INADEQUATE CONTROL [None]
  - DIABETIC KETOACIDOSIS [None]
  - HYPERGLYCAEMIA [None]
  - PANCREATITIS [None]
  - TARDIVE DYSKINESIA [None]
  - TYPE 1 DIABETES MELLITUS [None]
  - TYPE 2 DIABETES MELLITUS [None]
